FAERS Safety Report 7004022-6 (Version None)
Quarter: 2010Q3

REPORT INFORMATION
  Report Type: 
  Country: None (occurrence: None)
  Receive Date: 20100920
  Receipt Date: 20100125
  Transmission Date: 20110219
  Serious: No
  Sender: FDA-Public Use
  Company Number: US-WYE-H12973310

PATIENT
  Sex: Female
  Weight: 82.17 kg

DRUGS (3)
  1. PROTONIX [Suspect]
     Indication: GASTROOESOPHAGEAL REFLUX DISEASE
     Route: 048
     Dates: start: 20040101
  2. LOVASTATIN [Concomitant]
  3. LISINOPRIL [Concomitant]

REACTIONS (2)
  - MEAN CELL VOLUME INCREASED [None]
  - VITAMIN B COMPLEX DEFICIENCY [None]
